FAERS Safety Report 9307079 (Version 2)
Quarter: 2014Q1

REPORT INFORMATION
  Report Type: Report from Study
  Country: GB (occurrence: GB)
  Receive Date: 20130523
  Receipt Date: 20140328
  Transmission Date: 20141002
  Serious: Yes (Hospitalization)
  Sender: FDA-Public Use
  Company Number: GB-MERCK-1305GBR011868

PATIENT
  Age: 25 Year
  Sex: Female
  Weight: 52.6 kg

DRUGS (26)
  1. POSACONAZOLE [Suspect]
     Indication: ANTIFUNGAL PROPHYLAXIS
     Dosage: 400 MG, BID
     Route: 048
     Dates: start: 20130424, end: 20130513
  2. PREDNISOLONE [Concomitant]
     Indication: CYSTIC FIBROSIS
     Dosage: DOSE VARIABLE, QD
     Route: 048
  3. PREDNISOLONE [Concomitant]
     Indication: TRANSPLANT
  4. CICLESONIDE [Concomitant]
     Indication: CYSTIC FIBROSIS
     Dosage: 80 PG, QD, INHALED
     Route: 055
     Dates: end: 20130413
  5. OMEPRAZOLE [Concomitant]
     Indication: DYSPEPSIA
     Dosage: 20 MG, BID
     Route: 048
  6. URSODIOL [Concomitant]
     Indication: CYSTIC FIBROSIS
     Dosage: 250 MG, BID
     Route: 048
  7. TACROLIMUS [Concomitant]
     Indication: TRANSPLANT
     Dosage: UNK, BID
     Route: 048
     Dates: start: 20130413
  8. CELLCEPT [Concomitant]
     Indication: TRANSPLANT
     Dosage: 500 MG, BID
     Route: 048
     Dates: start: 20130413
  9. COLISTIN [Concomitant]
     Indication: PROPHYLAXIS
     Dosage: 1 MANAGEMENT, BID
     Route: 042
     Dates: start: 20130413, end: 20130430
  10. ATROVENT [Concomitant]
     Indication: CYSTIC FIBROSIS
     Dosage: 500 MICROGRAM, QID, ROUTE: NES
     Dates: end: 20130413
  11. SEPTRIN [Concomitant]
     Indication: PROPHYLAXIS
     Dosage: 480 MG, QD
     Route: 048
     Dates: start: 20130413, end: 20130511
  12. FERROUS FUMARATE [Concomitant]
     Indication: CYSTIC FIBROSIS
     Dosage: UNK, BID
     Route: 048
     Dates: start: 20130413
  13. ACETAMINOPHEN [Concomitant]
     Indication: POSTOPERATIVE ANALGESIA
     Dosage: 1 G, QID
     Route: 048
     Dates: start: 20130413
  14. METHYLPREDNISOLONE [Concomitant]
     Indication: IMMUNOSUPPRESSION
     Dosage: 125 MG, BID
     Route: 042
     Dates: start: 20130413, end: 20130414
  15. VALGANCICLOVIR HYDROCHLORIDE [Concomitant]
     Indication: ANTIVIRAL TREATMENT
     Dosage: 900 MG, QD
     Route: 048
     Dates: start: 20130413, end: 20130510
  16. CALCICHEW D3 FORTE [Concomitant]
     Indication: PROPHYLAXIS
     Dosage: 2 TABLETS, QD
     Route: 048
  17. CHOLECALCIFEROL (+) VITAMIN A [Concomitant]
     Indication: VITAMIN SUPPLEMENTATION
     Dosage: 2 CAPSULES, QD
     Route: 048
  18. ALENDRONIC ACID [Concomitant]
     Indication: PROPHYLAXIS
     Dosage: 70 MG, QW
     Route: 048
     Dates: start: 20130415
  19. HUMALOG [Concomitant]
     Indication: DIABETES MELLITUS
     Dosage: UNK, BID
     Route: 058
  20. CARBOCYSTEINE [Concomitant]
     Dosage: 750 MG, TID, AS MUCOLYTICS
     Route: 048
  21. DOMPERIDONE [Concomitant]
     Dosage: 10 MG, TID,  AS PROKINETICS
     Route: 048
     Dates: start: 20130416
  22. FUROSEMIDE [Concomitant]
     Indication: DIURETIC THERAPY
     Dosage: UNK, QD, VARIABLE DOSE AS DIURETIC
     Route: 048
     Dates: start: 20130414, end: 20130430
  23. TRAMADOL HYDROCHLORIDE [Concomitant]
     Indication: ANALGESIC THERAPY
     Dosage: 50 MG, QID, PRN
     Route: 048
     Dates: start: 20130414
  24. RANITIDINE [Concomitant]
     Dosage: 50 MG, TID, AS HZ RECEPTOR ANTAGONIST
     Route: 042
     Dates: start: 20130413, end: 20130415
  25. CRESTOR [Concomitant]
     Indication: CYSTIC FIBROSIS
     Dosage: 75000 IU, TID
     Route: 048
  26. FUROSEMIDE [Concomitant]
     Indication: DIURETIC THERAPY
     Dosage: VARIABLE DOSE AS DIURETIC, QD
     Route: 042
     Dates: start: 20130414, end: 20130430

REACTIONS (1)
  - Neutropenia [Recovered/Resolved]
